FAERS Safety Report 25974586 (Version 1)
Quarter: 2025Q4

REPORT INFORMATION
  Report Type: Report from Study
  Country: US (occurrence: US)
  Receive Date: 20251029
  Receipt Date: 20251029
  Transmission Date: 20260117
  Serious: No
  Sender: ACADIA PHARMACEUTICALS
  Company Number: US-ACADIA PHARMACEUTICALS INC.-ACA-2025-PIM-011503

PATIENT
  Sex: Male

DRUGS (4)
  1. NUPLAZID [Suspect]
     Active Substance: PIMAVANSERIN TARTRATE
     Indication: Hallucination
     Dosage: UNK
     Route: 065
  2. RASAGILINE [Concomitant]
     Active Substance: RASAGILINE
  3. SAFINAMIDE [Concomitant]
     Active Substance: SAFINAMIDE
  4. CARBIDOPA\LEVODOPA [Concomitant]
     Active Substance: CARBIDOPA\LEVODOPA

REACTIONS (5)
  - Initial insomnia [Unknown]
  - Abnormal behaviour [Unknown]
  - Anger [Unknown]
  - Confusional state [Unknown]
  - Product use in unapproved indication [Unknown]
